FAERS Safety Report 10266022 (Version 1)
Quarter: 2014Q2

REPORT INFORMATION
  Report Type: Spontaneous
  Country: CN (occurrence: CN)
  Receive Date: 20140627
  Receipt Date: 20140627
  Transmission Date: 20141212
  Serious: Yes (Hospitalization)
  Sender: FDA-Public Use
  Company Number: CN-BRISTOL-MYERS SQUIBB COMPANY-21067632

PATIENT
  Age: 50 Year
  Sex: Male
  Weight: 60 kg

DRUGS (2)
  1. GLUCOPHAGE TABS [Suspect]
     Indication: DIABETES MELLITUS
     Route: 048
     Dates: start: 20130130, end: 20130301
  2. ACARBOSE [Concomitant]
     Indication: DIABETES MELLITUS
     Route: 048
     Dates: start: 20120108, end: 20120306

REACTIONS (1)
  - Hepatocellular injury [Recovering/Resolving]
